FAERS Safety Report 5072386-9 (Version None)
Quarter: 2006Q3

REPORT INFORMATION
  Report Type: 
  Country: None (occurrence: None)
  Receive Date: 20060801
  Receipt Date: 20060721
  Transmission Date: 20061208
  Serious: Yes (Other)
  Sender: FDA-Public Use
  Company Number: USA-2006-0024706

PATIENT
  Age: 50 Year
  Sex: Male

DRUGS (1)
  1. OXYCONTIN [Suspect]
     Indication: DRUG ABUSER
     Dosage: INTRAVENOUS
     Route: 042

REACTIONS (3)
  - DRUG ABUSER [None]
  - PHYSICAL ASSAULT [None]
  - SUICIDAL BEHAVIOUR [None]
